FAERS Safety Report 5335524-6 (Version None)
Quarter: 2007Q2

REPORT INFORMATION
  Report Type: 
  Country: None (occurrence: None)
  Receive Date: 20070525
  Receipt Date: 20070517
  Transmission Date: 20071010
  Serious: Yes (Other)
  Sender: FDA-Public Use
  Company Number: BR-PFIZER INC-2007040790

PATIENT
  Sex: Male
  Weight: 66 kg

DRUGS (1)
  1. FELDENE [Suspect]
     Indication: BACK PAIN
     Route: 054

REACTIONS (1)
  - DENGUE FEVER [None]
